FAERS Safety Report 23481582 (Version 1)
Quarter: 2024Q1

REPORT INFORMATION
  Report Type: Spontaneous
  Country: US (occurrence: None)
  Receive Date: 20240202
  Receipt Date: 20240202
  Transmission Date: 20240410
  Serious: Yes (Life-Threatening, Hospitalization, Disabling)
  Sender: FDA-Public Use
  Company Number: None

PATIENT
  Age: 49 Year
  Sex: Male
  Weight: 65.25 kg

DRUGS (11)
  1. SPRAVATO [Suspect]
     Active Substance: ESKETAMINE
     Indication: Depression
     Dosage: 3 SPRAYS  ONGOING THERAPY  RESPIRATORY (INHALATION)?
     Route: 055
  2. SPRAVATO [Suspect]
     Active Substance: ESKETAMINE
     Indication: Suicide attempt
  3. SPRAVATO [Suspect]
     Active Substance: ESKETAMINE
     Indication: Mental disorder
  4. LAMICTAL [Concomitant]
     Active Substance: LAMOTRIGINE
  5. ADDERALL [Concomitant]
     Active Substance: AMPHETAMINE ASPARTATE\AMPHETAMINE SULFATE\DEXTROAMPHETAMINE SACCHARATE\DEXTROAMPHETAMINE SULFATE
  6. STRATTERA [Concomitant]
     Active Substance: ATOMOXETINE HYDROCHLORIDE
  7. EFFEXOR XR [Concomitant]
     Active Substance: VENLAFAXINE HYDROCHLORIDE
  8. SYNTHROID [Concomitant]
     Active Substance: LEVOTHYROXINE SODIUM
  9. UNSPECIFIED INGREDIENT [Concomitant]
     Active Substance: UNSPECIFIED INGREDIENT
  10. Centrum Vitamin [Concomitant]
  11. CANNABIDIOL [Concomitant]
     Active Substance: CANNABIDIOL

REACTIONS (6)
  - Product prescribing issue [None]
  - Mental disorder [None]
  - General physical health deterioration [None]
  - Psychotic disorder [None]
  - Seizure [None]
  - Tardive dyskinesia [None]

NARRATIVE: CASE EVENT DATE: 20240101
